FAERS Safety Report 19758148 (Version 1)
Quarter: 2021Q3

REPORT INFORMATION
  Report Type: Spontaneous
  Country: DE (occurrence: DE)
  Receive Date: 20210828
  Receipt Date: 20210828
  Transmission Date: 20211014
  Serious: Yes (Hospitalization, Other)
  Sender: FDA-Public Use
  Company Number: DE-SETONPHARMA-2021SETSPO00045

PATIENT
  Age: 18 Year
  Sex: Male
  Weight: 59 kg

DRUGS (5)
  1. IBRUTINIB [Suspect]
     Active Substance: IBRUTINIB
     Indication: CHRONIC GRAFT VERSUS HOST DISEASE
     Route: 048
     Dates: start: 20200116
  2. TAZOBACTAM [Interacting]
     Active Substance: TAZOBACTAM
     Indication: COVID-19 PNEUMONIA
     Route: 065
  3. PIPERACILLIN. [Interacting]
     Active Substance: PIPERACILLIN SODIUM
     Indication: COVID-19 PNEUMONIA
     Route: 065
  4. PREDNISOLONE. [Suspect]
     Active Substance: PREDNISOLONE
     Indication: CHRONIC GRAFT VERSUS HOST DISEASE
     Route: 048
     Dates: start: 20200917
  5. BAMLANIVIMAB. [Interacting]
     Active Substance: BAMLANIVIMAB
     Indication: COVID-19 PNEUMONIA
     Route: 065
     Dates: start: 20210224

REACTIONS (4)
  - COVID-19 pneumonia [Recovered/Resolved]
  - Pyrexia [Recovered/Resolved]
  - Productive cough [Recovered/Resolved]
  - Sputum discoloured [Recovered/Resolved]

NARRATIVE: CASE EVENT DATE: 20210401
